FAERS Safety Report 6463635-0 (Version None)
Quarter: 2009Q4

REPORT INFORMATION
  Report Type: 
  Country: None (occurrence: None)
  Receive Date: 20091201
  Receipt Date: 20091119
  Transmission Date: 20100525
  Serious: Yes (Hospitalization, Other)
  Sender: FDA-Public Use
  Company Number: PHEH2009US05193

PATIENT
  Sex: Female

DRUGS (3)
  1. EXJADE [Suspect]
     Indication: SICKLE CELL ANAEMIA
     Dosage: 500 MG, BID
     Route: 048
     Dates: start: 20080625
  2. EXJADE [Suspect]
     Indication: IRON OVERLOAD
     Dosage: 500 MG, BID
     Dates: start: 20080814
  3. EXJADE [Suspect]
     Dosage: 500MG DAILY

REACTIONS (12)
  - ANAEMIA [None]
  - ARTHROPATHY [None]
  - BONE INFARCTION [None]
  - DIZZINESS [None]
  - HAEMOLYSIS [None]
  - NAUSEA [None]
  - PAIN [None]
  - PANCREATITIS CHRONIC [None]
  - PNEUMONIA [None]
  - RENAL FUNCTION TEST ABNORMAL [None]
  - SERUM FERRITIN INCREASED [None]
  - SICKLE CELL ANAEMIA WITH CRISIS [None]
